FAERS Safety Report 17331208 (Version 1)
Quarter: 2020Q1

REPORT INFORMATION
  Report Type: Spontaneous
  Country: US (occurrence: US)
  Receive Date: 20200110
  Receipt Date: 20200110
  Transmission Date: 20200409
  Serious: No
  Sender: FDA-Public Use
  Company Number: None

PATIENT
  Age: 70 Year
  Sex: Male
  Weight: 112 kg

DRUGS (1)
  1. TIMOL (TIMOLOL MALEATE) [Suspect]
     Active Substance: TIMOLOL MALEATE
     Indication: OPEN ANGLE GLAUCOMA
     Dosage: ?          OTHER FREQUENCY:AM;?
     Route: 047
     Dates: start: 20190417, end: 20190523

REACTIONS (1)
  - Hypotension [None]

NARRATIVE: CASE EVENT DATE: 20190523
